FAERS Safety Report 6288776-2 (Version None)
Quarter: 2009Q3

REPORT INFORMATION
  Report Type: 
  Country: None (occurrence: None)
  Receive Date: 20090729
  Receipt Date: 20090722
  Transmission Date: 20100115
  Serious: Yes (Hospitalization, Other)
  Sender: FDA-Public Use
  Company Number: FR-ABBOTT-09P-056-0586900-00

PATIENT
  Sex: Female

DRUGS (6)
  1. KALETRA [Suspect]
     Indication: DRUG USE FOR UNKNOWN INDICATION
     Route: 048
     Dates: start: 20080214
  2. NEORECORMON [Suspect]
     Indication: ANAEMIA
     Dosage: 0.2857 DOSAGE FORM
     Route: 058
     Dates: start: 20090219, end: 20090415
  3. NEORECORMON [Suspect]
     Dosage: 2 INJECTIONS
     Dates: start: 20090611
  4. TRUVADA [Suspect]
     Indication: DRUG USE FOR UNKNOWN INDICATION
     Route: 048
     Dates: start: 20080214
  5. REBETOL [Suspect]
     Indication: DRUG USE FOR UNKNOWN INDICATION
     Route: 048
     Dates: start: 20080314
  6. VIRAFERONPEG [Suspect]
     Indication: DRUG USE FOR UNKNOWN INDICATION
     Dosage: 0.1429 DOSAGE FORM
     Route: 058

REACTIONS (3)
  - ANAEMIA [None]
  - CHEST PAIN [None]
  - ELECTROCARDIOGRAM ST SEGMENT ELEVATION [None]
